FAERS Safety Report 5761850-2 (Version None)
Quarter: 2008Q2

REPORT INFORMATION
  Report Type: 
  Country: None (occurrence: None)
  Receive Date: 20080603
  Receipt Date: 20080520
  Transmission Date: 20081010
  Serious: Yes (Death, Hospitalization)
  Sender: FDA-Public Use
  Company Number: 2008AL005574

PATIENT
  Age: 77 Year
  Sex: Male
  Weight: 90.7194 kg

DRUGS (1)
  1. DIGOXIN [Suspect]

REACTIONS (3)
  - BLOOD PRESSURE DECREASED [None]
  - NAUSEA [None]
  - VOMITING [None]
